FAERS Safety Report 18711229 (Version 1)
Quarter: 2021Q1

REPORT INFORMATION
  Report Type: Other
  Country: IT (occurrence: IT)
  Receive Date: 20210107
  Receipt Date: 20210107
  Transmission Date: 20210419
  Serious: Yes (Other)
  Sender: FDA-Public Use
  Company Number: IT-MACLEODS PHARMACEUTICALS US LTD-MAC2020029708

PATIENT

DRUGS (2)
  1. TAVOR (LORAZEPAM) [Suspect]
     Active Substance: LORAZEPAM
     Indication: DRUG ABUSE
     Dosage: UNK, ABUSE / MISUSE
     Route: 048
     Dates: start: 20201118, end: 20201118
  2. PANTOPRAZOLE [Suspect]
     Active Substance: PANTOPRAZOLE
     Indication: DRUG ABUSE
     Dosage: UNK, ABUSE / MISUSE
     Route: 048
     Dates: start: 20201118, end: 20201118

REACTIONS (4)
  - Vertigo [Recovered/Resolved]
  - Drug abuse [Recovered/Resolved]
  - Dysarthria [Recovered/Resolved]
  - Confabulation [Recovered/Resolved]

NARRATIVE: CASE EVENT DATE: 20201118
